APPROVED DRUG PRODUCT: DROSPIRENONE AND ETHINYL ESTRADIOL
Active Ingredient: DROSPIRENONE; ETHINYL ESTRADIOL
Strength: 3MG;0.03MG
Dosage Form/Route: TABLET;ORAL-28
Application: A210017 | Product #001
Applicant: JUBILANT CADISTA PHARMACEUTICALS INC
Approved: Sep 10, 2018 | RLD: No | RS: No | Type: DISCN